FAERS Safety Report 7635710-6 (Version None)
Quarter: 2011Q3

REPORT INFORMATION
  Report Type: 
  Country: None (occurrence: None)
  Receive Date: 20110726
  Receipt Date: 20110713
  Transmission Date: 20111222
  Serious: Yes (Hospitalization)
  Sender: FDA-Public Use
  Company Number: US-DX529-2011DX000037

PATIENT
  Age: 18 Year
  Sex: Female
  Weight: 65.77 kg

DRUGS (3)
  1. BERINERT [Concomitant]
     Indication: HEREDITARY ANGIOEDEMA
     Dates: start: 20110701
  2. KALBITOR [Suspect]
     Indication: HEREDITARY ANGIOEDEMA
     Route: 058
     Dates: start: 20110617, end: 20110617
  3. CINRYZE [Concomitant]
     Indication: HEREDITARY ANGIOEDEMA

REACTIONS (2)
  - PANCREATITIS [None]
  - NEPHROLITHIASIS [None]
